FAERS Safety Report 24283868 (Version 4)
Quarter: 2024Q4

REPORT INFORMATION
  Report Type: Report from Study
  Country: US (occurrence: US)
  Receive Date: 20240905
  Receipt Date: 20241120
  Transmission Date: 20250115
  Serious: Yes (Hospitalization, Other)
  Sender: AUROBINDO
  Company Number: US-AUROBINDO-AUR-APL-2024-043162

PATIENT
  Age: 70 Year
  Sex: Female
  Weight: 67.1 kg

DRUGS (45)
  1. METHOTREXATE [Suspect]
     Active Substance: METHOTREXATE
     Indication: Central nervous system lymphoma
     Dosage: 3.5 MG/M2 (C1D2)
     Route: 042
     Dates: start: 20240719
  2. METHOTREXATE [Suspect]
     Active Substance: METHOTREXATE
     Dosage: 3.5 MG/M2 (C1D16)
     Route: 042
     Dates: start: 20240731, end: 20240731
  3. METHOTREXATE [Suspect]
     Active Substance: METHOTREXATE
     Dosage: 3.5 GRAM PER SQUARE METRE
     Route: 042
     Dates: start: 20240821, end: 20240821
  4. METHOTREXATE [Suspect]
     Active Substance: METHOTREXATE
     Dosage: 3.5 MG/M2 (C3D2)
     Route: 042
     Dates: start: 20240918, end: 20240918
  5. METHOTREXATE [Suspect]
     Active Substance: METHOTREXATE
     Dosage: 3.5 MG/M2  (C3D16)
     Route: 042
     Dates: start: 20241001
  6. VINCRISTINE SULFATE [Suspect]
     Active Substance: VINCRISTINE SULFATE
     Indication: Central nervous system lymphoma
     Dosage: 1 MG/M2
     Route: 065
     Dates: start: 20240719
  7. VINCRISTINE SULFATE [Suspect]
     Active Substance: VINCRISTINE SULFATE
     Dosage: 1 MG/M2
     Route: 065
     Dates: start: 20240731, end: 20240731
  8. VINCRISTINE SULFATE [Suspect]
     Active Substance: VINCRISTINE SULFATE
     Dosage: 1 MG/M2
     Route: 065
     Dates: start: 20240821, end: 20240821
  9. VINCRISTINE SULFATE [Suspect]
     Active Substance: VINCRISTINE SULFATE
     Dosage: 1 MG/M2 (DOSE REDUCED DUE TO GRADE 2 PSN)
     Route: 042
     Dates: start: 20240904, end: 20240904
  10. PROCARBAZINE [Suspect]
     Active Substance: PROCARBAZINE
     Indication: Central nervous system lymphoma
     Dosage: 100 MG/M2
     Route: 048
     Dates: start: 20240719
  11. PROCARBAZINE [Suspect]
     Active Substance: PROCARBAZINE
     Dosage: 100 MG/M2 (C1D2 THROUGH 8 (DL0))
     Route: 048
     Dates: start: 20240721
  12. PROCARBAZINE [Suspect]
     Active Substance: PROCARBAZINE
     Dosage: 75 MG/M2
     Route: 065
     Dates: start: 20240821, end: 20240827
  13. PROCARBAZINE [Suspect]
     Active Substance: PROCARBAZINE
     Dosage: 75 MG/M2
     Route: 048
     Dates: start: 20240918, end: 20241002
  14. PROCARBAZINE [Suspect]
     Active Substance: PROCARBAZINE
     Dosage: 75 MG/M2  (C3, DL1 ON DAYS 2-8),
     Route: 048
     Dates: start: 20241001
  15. PROCARBAZINE [Suspect]
     Active Substance: PROCARBAZINE
     Dosage: UNK
     Route: 065
     Dates: start: 20240722
  16. PROCARBAZINE [Suspect]
     Active Substance: PROCARBAZINE
     Dosage: UNK
     Route: 065
     Dates: start: 20240725
  17. RITUXIMAB [Suspect]
     Active Substance: RITUXIMAB
     Indication: Central nervous system lymphoma
     Dosage: 500 MG/M2 (C1D1)
     Route: 042
     Dates: start: 20240718
  18. RITUXIMAB [Suspect]
     Active Substance: RITUXIMAB
     Dosage: 500 MG/M2 (C1D15)
     Route: 042
     Dates: start: 20240730, end: 20240730
  19. RITUXIMAB [Suspect]
     Active Substance: RITUXIMAB
     Dosage: 500 MG/M2
     Route: 065
     Dates: start: 20240820, end: 20240820
  20. RITUXIMAB [Suspect]
     Active Substance: RITUXIMAB
     Dosage: 500 MG/M2
     Route: 042
     Dates: start: 20240903, end: 20240903
  21. RITUXIMAB [Suspect]
     Active Substance: RITUXIMAB
     Dosage: 500 MG/M2  (C3D1)
     Route: 042
     Dates: start: 20240917, end: 20240917
  22. RITUXIMAB [Suspect]
     Active Substance: RITUXIMAB
     Dosage: 500 MG/M2 (C3D15)
     Route: 042
     Dates: start: 20241001, end: 20241001
  23. TIRABRUTINIB [Suspect]
     Active Substance: TIRABRUTINIB
     Indication: Central nervous system lymphoma
     Dosage: 480 MILLIGRAM, DAILY (CYCLE 1 WAS HELD DUE TO GRADE 3 AST/ALT),
     Route: 065
     Dates: start: 20240718, end: 20240721
  24. TIRABRUTINIB [Suspect]
     Active Substance: TIRABRUTINIB
     Dosage: UNK
     Route: 065
     Dates: start: 20240722
  25. TIRABRUTINIB [Suspect]
     Active Substance: TIRABRUTINIB
     Dosage: UNK
     Route: 065
     Dates: start: 20240801
  26. TIRABRUTINIB [Suspect]
     Active Substance: TIRABRUTINIB
     Dosage: 480 MILLIGRAM, DAILY (CYCLE 1)
     Route: 048
     Dates: start: 20240802, end: 20240807
  27. TIRABRUTINIB [Suspect]
     Active Substance: TIRABRUTINIB
     Dosage: UNK
     Route: 065
     Dates: start: 20240808
  28. TIRABRUTINIB [Suspect]
     Active Substance: TIRABRUTINIB
     Dosage: UNK
     Route: 065
     Dates: start: 20240818
  29. TIRABRUTINIB [Suspect]
     Active Substance: TIRABRUTINIB
     Dosage: 480 MILLIGRAM, DAILY (CYCLE 2) (DL 0) 08/20/2024 TO 09/04/2024 ON DAYS 1-28)
     Route: 048
     Dates: start: 20240820, end: 20240904
  30. TIRABRUTINIB [Suspect]
     Active Substance: TIRABRUTINIB
     Dosage: UNK  (NEGATIVE WORK-UP)
     Route: 065
     Dates: start: 20240905
  31. TIRABRUTINIB [Suspect]
     Active Substance: TIRABRUTINIB
     Dosage: 480 MILLIGRAM, DAILY ((CYCLE 2) (DL 0) 09/06/2024 TO 09/16/2024 ON DAYS 1-28)
     Route: 048
     Dates: start: 20240906, end: 20240916
  32. TIRABRUTINIB [Suspect]
     Active Substance: TIRABRUTINIB
     Dosage: UNK
     Route: 065
     Dates: start: 20240916
  33. TIRABRUTINIB [Suspect]
     Active Substance: TIRABRUTINIB
     Dosage: 3.5 MG/M2 (C3 DL 0 ON DAYS 1-28)
     Route: 048
     Dates: start: 20240917, end: 20241014
  34. DEXAMETHASONE [Concomitant]
     Active Substance: DEXAMETHASONE
     Indication: Product used for unknown indication
     Dosage: UNK
     Route: 065
     Dates: start: 20240629
  35. KEPPRA [Concomitant]
     Active Substance: LEVETIRACETAM
     Indication: Product used for unknown indication
     Dosage: UNK
     Route: 065
     Dates: start: 20240629
  36. SYNTHROID [Concomitant]
     Active Substance: LEVOTHYROXINE SODIUM
     Indication: Product used for unknown indication
     Dosage: UNK
     Route: 065
     Dates: start: 20240625
  37. BACTRIM [Concomitant]
     Active Substance: SULFAMETHOXAZOLE\TRIMETHOPRIM
     Indication: Product used for unknown indication
     Dosage: UNK
     Route: 065
     Dates: start: 20240712
  38. SIMETHICONE (DIMETHICONE) [Concomitant]
     Active Substance: DIMETHICONE
     Indication: Product used for unknown indication
     Dosage: UNK
     Route: 065
     Dates: start: 20240804
  39. AVAPRO [Concomitant]
     Active Substance: IRBESARTAN
     Indication: Product used for unknown indication
     Dosage: UNK
     Route: 065
     Dates: start: 2019
  40. CRESTOR [Concomitant]
     Active Substance: ROSUVASTATIN CALCIUM
     Indication: Product used for unknown indication
     Dosage: UNK
     Route: 065
     Dates: start: 2018
  41. SENNA [Concomitant]
     Active Substance: SENNA LEAF\SENNOSIDES\SENNOSIDES A AND B
     Indication: Product used for unknown indication
     Dosage: UNK
     Route: 065
  42. XANAX [Concomitant]
     Active Substance: ALPRAZOLAM
     Indication: Product used for unknown indication
     Dosage: UNK
     Route: 065
     Dates: start: 20240702
  43. METRONIDAZOLE [Concomitant]
     Active Substance: METRONIDAZOLE
     Indication: Colitis
     Dosage: 500 MILLIGRAM, ONCE A DAY
     Route: 042
     Dates: start: 20240807
  44. VANCOMYCIN [Concomitant]
     Active Substance: VANCOMYCIN
     Indication: Colitis
     Dosage: 125 MILLIGRAM, FOUR TIMES/DAY
     Route: 048
     Dates: start: 20240807
  45. FLAGYL [Concomitant]
     Active Substance: METRONIDAZOLE\METRONIDAZOLE HYDROCHLORIDE
     Indication: Colitis
     Dosage: 500 MILLIGRAM, ONCE A DAY
     Route: 042
     Dates: start: 20240808

REACTIONS (1)
  - Enterocolitis infectious [Recovered/Resolved]

NARRATIVE: CASE EVENT DATE: 20240807
